FAERS Safety Report 13008964 (Version 5)
Quarter: 2017Q1

REPORT INFORMATION
  Report Type: Spontaneous
  Country: GB (occurrence: GB)
  Receive Date: 20161208
  Receipt Date: 20170103
  Transmission Date: 20170428
  Serious: Yes (Death)
  Sender: FDA-Public Use
  Company Number: GB-PFIZER INC-2016562512

PATIENT
  Age: 68 Year
  Sex: Male

DRUGS (10)
  1. DEFEROXAMINE MESILATE [Suspect]
     Active Substance: DEFEROXAMINE MESYLATE
     Dosage: 2000 MG, UNK
     Route: 058
     Dates: start: 2016, end: 2016
  2. DEFEROXAMINE MESILATE [Suspect]
     Active Substance: DEFEROXAMINE MESYLATE
     Dosage: 2000 MG, UNK
     Route: 058
     Dates: start: 2016, end: 2016
  3. DEFEROXAMINE MESILATE [Suspect]
     Active Substance: DEFEROXAMINE MESYLATE
     Dosage: 2000 MG, UNK
     Route: 058
     Dates: start: 2016, end: 201608
  4. WATER FOR INJECTION [Suspect]
     Active Substance: WATER
     Indication: MEDICATION DILUTION
     Dosage: UNK (PH EUR 1L)
     Route: 058
     Dates: start: 201604, end: 2016
  5. DEFEROXAMINE MESILATE [Suspect]
     Active Substance: DEFEROXAMINE MESYLATE
     Dosage: 2000 MG, UNK
     Route: 058
     Dates: start: 201604, end: 2016
  6. DEFEROXAMINE MESILATE [Suspect]
     Active Substance: DEFEROXAMINE MESYLATE
     Dosage: 2000 MG, UNK
     Route: 058
     Dates: start: 2016, end: 2016
  7. SODIUM CHLORIDE. [Suspect]
     Active Substance: SODIUM CHLORIDE
     Dosage: UNK (0.9%BP 1L)
     Route: 058
     Dates: start: 2016, end: 201608
  8. WATER FOR INJECTION [Suspect]
     Active Substance: WATER
     Dosage: UNK (PH EUR 1L)
     Route: 058
     Dates: start: 2016, end: 201608
  9. SODIUM CHLORIDE. [Suspect]
     Active Substance: SODIUM CHLORIDE
     Indication: MEDICATION DILUTION
     Dosage: UNK (0.9%BP 1L)
     Route: 058
     Dates: start: 201604, end: 2016
  10. WATER FOR INJECTION [Suspect]
     Active Substance: WATER
     Dosage: UNK (PH EUR 1L)
     Route: 058
     Dates: start: 2016, end: 2016

REACTIONS (1)
  - Death [Fatal]

NARRATIVE: CASE EVENT DATE: 20161120
